FAERS Safety Report 5428410-4 (Version None)
Quarter: 2007Q3

REPORT INFORMATION
  Report Type: 
  Country: None (occurrence: None)
  Receive Date: 20070731
  Receipt Date: 20070501
  Transmission Date: 20080115
  Serious: No
  Sender: FDA-Public Use
  Company Number: US200705000453

PATIENT
  Age: 74 Year
  Sex: Female

DRUGS (6)
  1. BYETTA [Suspect]
     Indication: DIABETES MELLITUS
     Dosage: 5 UG, 2/D, SUBCUTANEOUS, 5 UG, DAILY (1/D), SUBCUTANEOUS
     Route: 058
     Dates: start: 20070329, end: 20070331
  2. BYETTA [Suspect]
     Indication: DIABETES MELLITUS
     Dosage: 5 UG, 2/D, SUBCUTANEOUS, 5 UG, DAILY (1/D), SUBCUTANEOUS
     Route: 058
     Dates: start: 20070409
  3. EXENATIDE (EXENATIDE) [Concomitant]
  4. HUMULIN N [Concomitant]
  5. HUMULIN R [Concomitant]
  6. ACTOS [Concomitant]

REACTIONS (3)
  - DECREASED APPETITE [None]
  - DIZZINESS [None]
  - NAUSEA [None]
